FAERS Safety Report 9548328 (Version 1)
Quarter: 2013Q3

REPORT INFORMATION
  Report Type: Spontaneous
  Country: US (occurrence: None)
  Receive Date: 20130920
  Receipt Date: 20130920
  Transmission Date: 20140515
  Serious: No
  Sender: FDA-Public Use
  Company Number: 1893912

PATIENT
  Age: 69 Year
  Sex: Male

DRUGS (4)
  1. METHOTREXATE [Suspect]
     Indication: RHEUMATOID ARTHRITIS
     Route: 058
  2. CORTISONE [Concomitant]
  3. CRESTOR [Concomitant]
  4. PANTOLOC [Concomitant]

REACTIONS (1)
  - Injection site pain [None]
